FAERS Safety Report 11570944 (Version 2)
Quarter: 2015Q4

REPORT INFORMATION
  Report Type: Spontaneous
  Country: US (occurrence: US)
  Receive Date: 20150916
  Receipt Date: 20151027
  Transmission Date: 20160304
  Serious: No
  Sender: FDA-Public Use
  Company Number: US-ELI_LILLY_AND_COMPANY-US200909003675

PATIENT
  Sex: Female

DRUGS (2)
  1. FORTEO [Suspect]
     Active Substance: TERIPARATIDE
     Indication: OSTEOPOROSIS
     Dosage: UNK, UNKNOWN
     Dates: start: 20090819
  2. FORTEO [Suspect]
     Active Substance: TERIPARATIDE
     Dosage: UNK, UNKNOWN
     Dates: end: 20100804

REACTIONS (7)
  - Heart rate irregular [Unknown]
  - Arthralgia [Unknown]
  - Insomnia [Unknown]
  - Nervousness [Unknown]
  - Muscle spasms [Unknown]
  - Limb discomfort [Unknown]
  - Paraesthesia [Unknown]
